FAERS Safety Report 16299390 (Version 3)
Quarter: 2019Q2

REPORT INFORMATION
  Report Type: Spontaneous
  Country: BE (occurrence: BE)
  Receive Date: 20190510
  Receipt Date: 20190621
  Transmission Date: 20190711
  Serious: Yes (Other)
  Sender: FDA-Public Use
  Company Number: BE-SAOL THERAPEUTICS-2019SAO00178

PATIENT
  Age: 50 Year
  Sex: Female

DRUGS (2)
  1. LIORESAL [Suspect]
     Active Substance: BACLOFEN
     Dosage: 12.2 ?G, \DAY; MIMINUM RATE/97% DECREASE
     Route: 037
     Dates: start: 20190612
  2. LIORESAL [Suspect]
     Active Substance: BACLOFEN
     Dosage: 349.7 ?G, \DAY
     Route: 037
     Dates: end: 20190612

REACTIONS (3)
  - Burning sensation [Recovered/Resolved]
  - Therapy non-responder [Recovered/Resolved]
  - Gait disturbance [Recovered/Resolved]

NARRATIVE: CASE EVENT DATE: 20190125
